FAERS Safety Report 20828356 (Version 1)
Quarter: 2022Q2

REPORT INFORMATION
  Report Type: Report from Study
  Country: TH (occurrence: None)
  Receive Date: 20220513
  Receipt Date: 20220513
  Transmission Date: 20220721
  Serious: Yes (Death, Hospitalization)
  Sender: FDA-Public Use
  Company Number: 2021A854093

PATIENT
  Age: 25215 Day
  Sex: Female

DRUGS (7)
  1. TAGRISSO [Suspect]
     Active Substance: OSIMERTINIB
     Indication: Non-small cell lung cancer metastatic
     Route: 048
     Dates: start: 20201030, end: 20211027
  2. EDARBI [Concomitant]
     Active Substance: AZILSARTAN KAMEDOXOMIL
     Dosage: 1/2 TAB
     Route: 065
  3. BISLOC [Concomitant]
     Route: 065
  4. MANIDIPINE HYDROCHLORIDE [Concomitant]
     Active Substance: MANIDIPINE HYDROCHLORIDE
     Dosage: 1/2 TAB
     Route: 065
  5. BESTATIN [Concomitant]
     Route: 065
  6. IRON [Concomitant]
     Active Substance: IRON
     Route: 065
  7. FERROUS SULFATE [Concomitant]
     Active Substance: FERROUS SULFATE
     Dosage: 200.0MG UNKNOWN
     Route: 065

REACTIONS (6)
  - Ischaemic stroke [Unknown]
  - Aphasia [Unknown]
  - Dysphagia [Unknown]
  - Muscular weakness [Unknown]
  - Drug resistance [Unknown]
  - Death [Fatal]

NARRATIVE: CASE EVENT DATE: 20211027
